FAERS Safety Report 8247870 (Version 8)
Quarter: 2014Q3

REPORT INFORMATION
  Report Type: Report from Study
  Country: CN (occurrence: CN)
  Receive Date: 20111116
  Receipt Date: 20140806
  Transmission Date: 20150326
  Serious: Yes (Life-Threatening)
  Sender: FDA-Public Use
  Company Number: PHHO2011CN018993

PATIENT
  Age: 70 Year
  Sex: Male
  Weight: 57.5 kg

DRUGS (13)
  1. TORASEMIDE [Concomitant]
     Active Substance: TORSEMIDE
     Indication: CARDIAC FAILURE CHRONIC
     Dosage: 20 MG, QD
     Route: 048
     Dates: start: 20110417
  2. FUROSEMIDE. [Concomitant]
     Active Substance: FUROSEMIDE
     Indication: CARDIAC FAILURE CHRONIC
     Dosage: 20 MG, QD
     Route: 048
     Dates: start: 20110417, end: 20111111
  3. ENOXAPARIN [Concomitant]
     Active Substance: ENOXAPARIN
     Indication: ANTICOAGULANT THERAPY
     Dosage: 0.4 ML, Q12H
     Dates: start: 20111114, end: 20111122
  4. ISOSORBIDE MONONITRATE. [Concomitant]
     Active Substance: ISOSORBIDE MONONITRATE
     Indication: PROPHYLAXIS
     Dosage: 50 MG, QD
     Route: 048
     Dates: start: 20110417, end: 20111129
  5. ASPIRIN. [Concomitant]
     Active Substance: ASPIRIN
     Indication: HYPERTENSION
     Dosage: 100 MG, QD
     Route: 048
     Dates: start: 20110417, end: 20111111
  6. CEFUROXIME. [Concomitant]
     Active Substance: CEFUROXIME
     Dosage: 1.5 G, BID
     Route: 042
     Dates: start: 20111124, end: 20111128
  7. LCZ696 [Suspect]
     Active Substance: INVESTIGATIONAL PRODUCT
     Indication: CARDIAC FAILURE CHRONIC
     Dosage: 200 MG, BID
     Route: 048
     Dates: start: 20110920, end: 20111111
  8. VITAMIN C [Concomitant]
     Active Substance: ASCORBIC ACID
     Indication: HEPATIC FUNCTION ABNORMAL
     Dosage: 100 MG, TID
     Dates: start: 20111122, end: 20111201
  9. SPIRONOLACTONE. [Concomitant]
     Active Substance: SPIRONOLACTONE
     Indication: CARDIAC FAILURE CHRONIC
     Dosage: 20 MG, QD
     Dates: start: 20110417
  10. POTASSIUM CHLORIDE. [Concomitant]
     Active Substance: POTASSIUM CHLORIDE
     Indication: CARDIAC FAILURE CHRONIC
     Dosage: 1 G, TID
     Route: 048
     Dates: start: 20110417
  11. BISOPROLOL [Concomitant]
     Active Substance: BISOPROLOL
     Indication: CARDIAC FAILURE CHRONIC
     Dosage: 1.25 MG, QD
     Route: 048
     Dates: start: 20111124
  12. BISOPROLOL [Suspect]
     Active Substance: BISOPROLOL
     Indication: CARDIAC FAILURE CHRONIC
     Dosage: 3.75 MG, QD
     Route: 048
     Dates: start: 20111021, end: 20111111
  13. CEFUROXIME. [Concomitant]
     Active Substance: CEFUROXIME
     Indication: INFECTION PROPHYLAXIS
     Dosage: 1.5 G, BID
     Route: 042
     Dates: start: 20111114, end: 20111117

REACTIONS (3)
  - Condition aggravated [Recovering/Resolving]
  - Hyperkalaemia [Recovering/Resolving]
  - Atrioventricular block complete [Recovered/Resolved]

NARRATIVE: CASE EVENT DATE: 20111111
